FAERS Safety Report 9626414 (Version 1)
Quarter: 2013Q4

REPORT INFORMATION
  Report Type: Spontaneous
  Country: US (occurrence: None)
  Receive Date: 20131015
  Receipt Date: 20131015
  Transmission Date: 20140711
  Serious: Yes (Life-Threatening, Hospitalization, Other)
  Sender: FDA-Public Use
  Company Number: None

PATIENT
  Age: 52 Year
  Sex: Male
  Weight: 79.38 kg

DRUGS (3)
  1. CYMBALTA [Suspect]
     Indication: NEUROPATHY PERIPHERAL
     Route: 048
  2. CYMBALTA [Suspect]
     Indication: PAIN
     Route: 048
  3. LYRICAL [Suspect]

REACTIONS (4)
  - Apathy [None]
  - Agitation [None]
  - Depression [None]
  - Suicide attempt [None]
